FAERS Safety Report 4729858-3 (Version None)
Quarter: 2005Q3

REPORT INFORMATION
  Report Type: 
  Country: None (occurrence: None)
  Receive Date: 20050801
  Receipt Date: 20050621
  Transmission Date: 20060218
  Serious: Yes (Disabling, Other)
  Sender: FDA-Public Use
  Company Number: US-MERCK-0506USA03143

PATIENT
  Age: 62 Year
  Sex: Female
  Weight: 61 kg

DRUGS (2)
  1. FOSAMAX [Suspect]
     Indication: OSTEOPENIA
     Route: 048
     Dates: start: 19990808, end: 20010102
  2. FOSAMAX [Suspect]
     Route: 048
     Dates: start: 20010103

REACTIONS (3)
  - IMPAIRED HEALING [None]
  - OSTEOMYELITIS CHRONIC [None]
  - OSTEONECROSIS [None]
